FAERS Safety Report 7575056-8 (Version None)
Quarter: 2011Q2

REPORT INFORMATION
  Report Type: 
  Country: None (occurrence: None)
  Receive Date: 20110627
  Receipt Date: 20110523
  Transmission Date: 20111010
  Serious: Yes (Hospitalization)
  Sender: FDA-Public Use
  Company Number: US-BAYER-201038978NA

PATIENT
  Age: 28 Year
  Sex: Female

DRUGS (3)
  1. EFFEXOR XR [Concomitant]
     Indication: DEPRESSION
     Dosage: 150 MG, QD
     Route: 048
  2. YASMIN [Suspect]
     Indication: CONTRACEPTION
     Route: 048
     Dates: start: 20060801
  3. YASMIN [Suspect]
     Indication: MENORRHAGIA
     Dosage: UNK
     Dates: start: 20070101

REACTIONS (1)
  - INTRACRANIAL VENOUS SINUS THROMBOSIS [None]
